FAERS Safety Report 8813618 (Version 1)
Quarter: 2012Q4

REPORT INFORMATION
  Report Type: 
  Country: US (occurrence: US)
  Receive Date: 20120927
  Receipt Date: 20120927
  Transmission Date: 20130627
  Serious: Yes (Other)
  Sender: FDA-Public Use
  Company Number: US-PFIZER INC-2012238547

PATIENT
  Age: 71 Year
  Sex: Female
  Weight: 72.56 kg

DRUGS (11)
  1. LYRICA [Suspect]
     Indication: FIBROMYALGIA
     Dosage: UNK
     Route: 048
     Dates: start: 2010
  2. LYRICA [Suspect]
     Dosage: 150 mg, 2x/day
     Route: 048
  3. LYRICA [Suspect]
     Dosage: 150 mg, 1x/day
     Route: 048
     Dates: end: 20120918
  4. LYRICA [Suspect]
     Dosage: 150 mg, 1x/day
     Route: 048
     Dates: start: 20120922
  5. CALCIUM [Concomitant]
     Dosage: UNK
  6. VITAMIN D [Concomitant]
     Dosage: UNK
  7. ASPIRIN [Concomitant]
     Dosage: 81 mg, UNK
  8. LIPITOR [Concomitant]
     Dosage: 80 mg, 1x/day
  9. LISINOPRIL [Concomitant]
     Dosage: 20 mg, 1x/day
  10. ZOLOFT [Concomitant]
     Dosage: 100 mg, 1x/day
  11. PRILOSEC [Concomitant]
     Indication: GASTROOESOPHAGEAL REFLUX DISEASE
     Dosage: 40 mg, 1x/day

REACTIONS (6)
  - Withdrawal syndrome [Recovered/Resolved]
  - Aphagia [Recovered/Resolved]
  - Vomiting [Recovered/Resolved]
  - Restlessness [Recovered/Resolved]
  - Malaise [Recovered/Resolved]
  - Somnolence [Recovered/Resolved]
